FAERS Safety Report 9274611 (Version 2)
Quarter: 2013Q3

REPORT INFORMATION
  Report Type: Spontaneous
  Country: US (occurrence: US)
  Receive Date: 20130507
  Receipt Date: 20130715
  Transmission Date: 20140515
  Serious: No
  Sender: FDA-Public Use
  Company Number: US-009507513-1305USA002473

PATIENT
  Sex: Male
  Weight: 79.82 kg

DRUGS (8)
  1. VICTRELIS [Suspect]
     Dosage: 4 CAPSULES, TID, WITH FOOD START AFTER 4 WEEK LEAD IN WITH PEGINTRON AND RIBAVIRIN
     Route: 048
  2. PEGINTRON [Suspect]
     Dosage: REDIPEN, MIX AS DIRECTED DIAL TO 0.5ML AND INJECT SUBQ WEEKLY AS DIRECTED BY YOUR PHYSICIAN
     Route: 058
  3. PEGINTRON [Suspect]
     Dosage: 150 MICROGRAM,PEG-INTRON  KIT
  4. RIBAPAK [Suspect]
     Dosage: 1200, QD
  5. TRAMADOL HYDROCHLORIDE [Concomitant]
     Dosage: 50 MG, UNK
  6. MILK THISTLE [Concomitant]
     Dosage: UNKNOWN
  7. PROBIOTICA [Concomitant]
     Dosage: UNKNOWN
  8. DIGESTIVE ENZYMES [Concomitant]
     Dosage: UNKNOWN

REACTIONS (9)
  - Sinus disorder [Unknown]
  - Pain [Unknown]
  - Vision blurred [Unknown]
  - Headache [Unknown]
  - Fatigue [Unknown]
  - Dizziness [Unknown]
  - Anxiety [Unknown]
  - Dyspnoea [Unknown]
  - Influenza like illness [Unknown]
